FAERS Safety Report 17417792 (Version 1)
Quarter: 2020Q1

REPORT INFORMATION
  Report Type: Spontaneous
  Country: DE (occurrence: DE)
  Receive Date: 20200214
  Receipt Date: 20200214
  Transmission Date: 20200409
  Serious: Yes (Hospitalization)
  Sender: FDA-Public Use
  Company Number: DE-DRREDDYS-GER/GER/20/0119484

PATIENT
  Age: 14 Year
  Sex: Female

DRUGS (2)
  1. CITALOPRAM [Suspect]
     Active Substance: CITALOPRAM HYDROBROMIDE
     Indication: SUICIDAL IDEATION
     Dosage: DAILY DOSE: 100 MG MILLGRAM(S) EVERY DAYS 10 SEPARATED DOSES
     Route: 048
     Dates: start: 20190812, end: 20190812
  2. IBUPROFEN. [Suspect]
     Active Substance: IBUPROFEN
     Indication: SUICIDAL IDEATION
     Dosage: DAILY DOSE: 2400 MG MILLGRAM(S) EVERY DAYS 6 SEPARATED DOSES
     Route: 048
     Dates: start: 20190813, end: 20190813

REACTIONS (3)
  - Dizziness [Recovered/Resolved]
  - Substance abuser [Recovered/Resolved]
  - Nausea [Recovered/Resolved]

NARRATIVE: CASE EVENT DATE: 20190812
